FAERS Safety Report 9045000 (Version 1)
Quarter: 2013Q1

REPORT INFORMATION
  Report Type: Report from Study
  Country: US (occurrence: US)
  Receive Date: 20130130
  Receipt Date: 20130130
  Transmission Date: 20140127
  Serious: No
  Sender: FDA-Public Use
  Company Number: US-ABBOTT-12P-163-0963504-00

PATIENT
  Sex: Female

DRUGS (1)
  1. HUMIRA 40 MG/ 0.8 ML PRE-FILLED SYRINGE [Suspect]
     Indication: PSORIATIC ARTHROPATHY
     Route: 058
     Dates: start: 20120511

REACTIONS (10)
  - Diarrhoea [Unknown]
  - Malaise [Unknown]
  - Malaise [Unknown]
  - Tooth extraction [Unknown]
  - Migraine [Unknown]
  - Abdominal pain upper [Unknown]
  - Dyspnoea [Unknown]
  - Tooth infection [Unknown]
  - Joint swelling [Unknown]
  - Dyspnoea [Unknown]
